FAERS Safety Report 4932669-7 (Version None)
Quarter: 2006Q1

REPORT INFORMATION
  Report Type: 
  Country: None (occurrence: None)
  Receive Date: 20060301
  Receipt Date: 20060221
  Transmission Date: 20060701
  Serious: Yes (Other)
  Sender: FDA-Public Use
  Company Number: CHPA2006US02110

PATIENT
  Age: 63 Year
  Sex: Male
  Weight: 111.1 kg

DRUGS (1)
  1. 4 WAY FAST ACTING NASAL SPRAY (NCH)(PHENYLEPHRINE) NASAL SPRAY [Suspect]
     Indication: NASAL CONGESTION
     Dosage: 2 SPRAYS, 10 2 TIMES A DAY, NASAL
     Route: 045

REACTIONS (4)
  - BLOOD PRESSURE INADEQUATELY CONTROLLED [None]
  - DRUG DEPENDENCE [None]
  - HYPERTENSION [None]
  - NASAL CONGESTION [None]
